FAERS Safety Report 9472815 (Version 1)
Quarter: 2013Q3

REPORT INFORMATION
  Report Type: Report from Study
  Country: BR (occurrence: BR)
  Receive Date: 20130823
  Receipt Date: 20130823
  Transmission Date: 20140515
  Serious: Yes (Other)
  Sender: FDA-Public Use
  Company Number: PHHY2013BR090382

PATIENT
  Age: 34 Year
  Sex: Female

DRUGS (9)
  1. EVEROLIMUS [Suspect]
     Indication: KIDNEY TRANSPLANT REJECTION
     Dosage: UNK UKN, UNK
     Dates: end: 20130426
  2. EVEROLIMUS [Suspect]
     Indication: CYTOMEGALOVIRUS INFECTION
     Dosage: 1 MG, PER DAY
  3. BASILIXIMAB [Suspect]
     Dosage: UNK UKN, UNK
  4. METHYLPREDNISOLONE [Suspect]
     Indication: INDUCTION OF ANAESTHESIA
     Dosage: UNK UKN, UNK
     Dates: start: 20130430, end: 20130502
  5. TACROLIMUS [Suspect]
     Dosage: 17 MG, PER DAY
  6. PREDNISONE [Suspect]
     Dosage: 5 MG, PER DAY
  7. MYCOPHENOLATE MOFETIL [Suspect]
     Dosage: UNK UKN, UNK
     Dates: end: 20130426
  8. MAREVAN [Concomitant]
     Dosage: UNK UKN, UNK
     Dates: start: 20130403
  9. VALGANCICLOVIR [Concomitant]
     Dosage: 450 MG, BID

REACTIONS (7)
  - Arteriovenous fistula thrombosis [Unknown]
  - Complications of transplanted kidney [Unknown]
  - Haematoma infection [Unknown]
  - Kidney transplant rejection [Unknown]
  - Polyuria [Unknown]
  - Proteinuria [Unknown]
  - Cytomegalovirus infection [Unknown]
